FAERS Safety Report 16936751 (Version 1)
Quarter: 2019Q4

REPORT INFORMATION
  Report Type: Spontaneous
  Country: US (occurrence: US)
  Receive Date: 20191018
  Receipt Date: 20191018
  Transmission Date: 20200122
  Serious: Yes (Other)
  Sender: FDA-Public Use
  Company Number: US-GILEAD-2019-0433487

PATIENT
  Age: 49 Year
  Sex: Male

DRUGS (1)
  1. HARVONI [Suspect]
     Active Substance: LEDIPASVIR\SOFOSBUVIR
     Indication: PRODUCT USED FOR UNKNOWN INDICATION
     Dosage: UNK
     Route: 065
     Dates: start: 2014

REACTIONS (17)
  - Food allergy [Unknown]
  - Hypogonadism [Unknown]
  - Somnolence [Unknown]
  - Autoimmune disorder [Unknown]
  - Bedridden [Unknown]
  - Rectal haemorrhage [Unknown]
  - Pain in extremity [Unknown]
  - Quality of life decreased [Unknown]
  - Headache [Unknown]
  - Dyspnoea [Unknown]
  - Basedow^s disease [Unknown]
  - Asthma [Unknown]
  - Pancreatic disorder [Unknown]
  - Pain [Unknown]
  - Latent autoimmune diabetes in adults [Unknown]
  - Fatigue [Unknown]
  - Asthenia [Unknown]

NARRATIVE: CASE EVENT DATE: 2017
